FAERS Safety Report 25397692 (Version 3)
Quarter: 2025Q4

REPORT INFORMATION
  Report Type: Spontaneous
  Country: US (occurrence: US)
  Receive Date: 20250604
  Receipt Date: 20251209
  Transmission Date: 20260117
  Serious: Yes (Hospitalization)
  Sender: SAREPTA THERAPEUTICS
  Company Number: US-SAREPTA THERAPEUTICS INC.-SRP2025-006051

PATIENT
  Sex: Male

DRUGS (2)
  1. AMONDYS 45 [Suspect]
     Active Substance: CASIMERSEN
     Indication: Duchenne muscular dystrophy
     Dosage: 1800 MILLIGRAM WEEKLY
  2. AMONDYS 45 [Suspect]
     Active Substance: CASIMERSEN
     Dosage: 1700 MILLIGRAM, WEEKLY

REACTIONS (2)
  - Cardiac failure [Unknown]
  - Palpitations [Unknown]

NARRATIVE: CASE EVENT DATE: 20250101
